FAERS Safety Report 9491414 (Version 2)
Quarter: 2013Q1

REPORT INFORMATION
  Report Type: Not Available
  Country: None (occurrence: US)
  Receive Date: 20120619
  Receipt Date: 20120619
  Transmission Date: 20140127
  Serious: Yes (Hospitalization)
  Sender: FDA-Public Use
  Company Number: US-LUNDBECK-DKLU1068123

PATIENT
  Age: 16 None
  Sex: Male
  Weight: 47.7 kg

DRUGS (7)
  1. CLOBAZAM [Suspect]
     Indication: LENNOX-GASTAUT SYNDROME
     Route: 048
     Dates: start: 20090312, end: 20090323
  2. CLOBAZAM [Suspect]
     Route: 048
     Dates: start: 20090324, end: 20090916
  3. CLOBAZAM [Suspect]
     Route: 048
     Dates: start: 20090917, end: 20100317
  4. CLOBAZAM [Suspect]
     Route: 048
     Dates: start: 20100318
  5. BENZYL 800/600 [Concomitant]
     Indication: PRODUCT USED FOR UNKNOWN INDICATION
  6. ZARONTIN [Concomitant]
     Indication: PRODUCT USED FOR UNKNOWN INDICATION
  7. LAMICTAL [Concomitant]
     Indication: PRODUCT USED FOR UNKNOWN INDICATION

REACTIONS (1)
  - Influenza [Recovered/Resolved]
